FAERS Safety Report 25807213 (Version 1)
Quarter: 2025Q3

REPORT INFORMATION
  Report Type: Spontaneous
  Country: EU (occurrence: EU)
  Receive Date: 20250916
  Receipt Date: 20250916
  Transmission Date: 20251020
  Serious: Yes (Other)
  Sender: BAUSCH AND LOMB
  Company Number: EU-002147023-NVSC2025DE125323

PATIENT
  Sex: Female

DRUGS (6)
  1. VENLAFAXINE [Suspect]
     Active Substance: VENLAFAXINE HYDROCHLORIDE
     Indication: Major depression
     Dosage: 112.5 MG, QD
     Route: 048
     Dates: start: 20120802
  2. VENLAFAXINE [Suspect]
     Active Substance: VENLAFAXINE HYDROCHLORIDE
     Indication: Psychotic disorder
  3. KESIMPTA [Suspect]
     Active Substance: OFATUMUMAB
     Indication: Relapsing-remitting multiple sclerosis
     Dosage: 20 MG, QMO
     Route: 058
     Dates: start: 20230809, end: 20250801
  4. KESIMPTA [Suspect]
     Active Substance: OFATUMUMAB
     Route: 065
  5. BACLOFEN [Suspect]
     Active Substance: BACLOFEN
     Indication: Muscle spasms
     Dosage: 25 MG, QD
     Route: 065
     Dates: start: 20210114
  6. LEVOTHYROXINE SODIUM [Concomitant]
     Active Substance: LEVOTHYROXINE SODIUM
     Indication: Goitre
     Dosage: 50 UG, QD
     Route: 065
     Dates: start: 20120611

REACTIONS (1)
  - Liposarcoma [Not Recovered/Not Resolved]

NARRATIVE: CASE EVENT DATE: 20250617
